FAERS Safety Report 8212570-6 (Version None)
Quarter: 2012Q1

REPORT INFORMATION
  Report Type: 
  Country: None (occurrence: None)
  Receive Date: 20120315
  Receipt Date: 20120301
  Transmission Date: 20120608
  Serious: Yes (Hospitalization, Congenital Anomaly)
  Sender: FDA-Public Use
  Company Number: DE-WATSON-2012-03702

PATIENT
  Sex: Female
  Weight: 3.29 kg

DRUGS (4)
  1. LEVOTHYROXINE SODIUM [Suspect]
     Indication: HYPOTHYROIDISM
     Dosage: 100 MCG, DAILY
     Route: 064
     Dates: start: 20110301, end: 20110503
  2. METFORMIN HCL [Suspect]
     Indication: POLYCYSTIC OVARIES
     Dosage: UNK
     Route: 064
     Dates: start: 20100803, end: 20110111
  3. DEKRISTOL [Suspect]
     Indication: VITAMIN D DEFICIENCY
     Dosage: ONCE EVERY 14 DAYS
     Route: 064
     Dates: start: 20100803, end: 20110111
  4. LEVOTHYROXINE SODIUM [Suspect]
     Dosage: 50 MCG, DAILY
     Route: 064
     Dates: start: 20100803, end: 20110301

REACTIONS (2)
  - OVARIAN CYST [None]
  - MATERNAL DRUGS AFFECTING FOETUS [None]
